FAERS Safety Report 9708264 (Version 1)
Quarter: 2013Q4

REPORT INFORMATION
  Report Type: Spontaneous
  Country: DE (occurrence: DE)
  Receive Date: 20131125
  Receipt Date: 20131125
  Transmission Date: 20140711
  Serious: Yes (Hospitalization, Other)
  Sender: FDA-Public Use
  Company Number: DE-PFIZER INC-2013331014

PATIENT
  Age: 56 Year
  Sex: Male

DRUGS (6)
  1. LYRICA [Suspect]
     Dosage: 250 MG, DAILY
     Route: 048
     Dates: start: 200912
  2. ZYPREXA [Suspect]
     Dosage: 15 MG DAILY, REDUCED TO 5 MG DAILY
     Route: 048
     Dates: start: 20110315, end: 20111210
  3. ATOSIL [Suspect]
     Dosage: 100 MG, DAILY
     Route: 048
     Dates: start: 200812
  4. CIPRAMIL [Suspect]
  5. MIRTAZAPINE [Suspect]
  6. ESIDRIX [Concomitant]
     Dosage: 25 MG, DAILY
     Route: 048
     Dates: start: 2008

REACTIONS (5)
  - Obesity [Unknown]
  - Weight increased [Unknown]
  - Panic attack [Unknown]
  - Depressed mood [Recovering/Resolving]
  - Hunger [Recovering/Resolving]
